FAERS Safety Report 7318047-4 (Version None)
Quarter: 2011Q1

REPORT INFORMATION
  Report Type: 
  Country: None (occurrence: None)
  Receive Date: 20110228
  Receipt Date: 20110217
  Transmission Date: 20110831
  Serious: Yes (Hospitalization)
  Sender: FDA-Public Use
  Company Number: US-BIOGENIDEC-2010BI031485

PATIENT
  Age: 37 Year
  Sex: Male
  Weight: 76 kg

DRUGS (2)
  1. TYSABRI [Suspect]
     Indication: MULTIPLE SCLEROSIS
     Route: 042
     Dates: start: 20070228, end: 20090311
  2. TYSABRI [Suspect]
     Route: 042
     Dates: start: 20100816, end: 20100920

REACTIONS (5)
  - INTERVERTEBRAL DISC DISORDER [None]
  - BACK PAIN [None]
  - FALL [None]
  - SPINAL DISORDER [None]
  - NAUSEA [None]
